FAERS Safety Report 15394416 (Version 1)
Quarter: 2018Q3

REPORT INFORMATION
  Report Type: Report from Study
  Country: None (occurrence: US)
  Receive Date: 20180918
  Receipt Date: 20180918
  Transmission Date: 20181010
  Serious: Yes (Other)
  Sender: FDA-Public Use
  Company Number: US-ABBVIE-18S-163-2484670-00

PATIENT
  Age: 39 Year
  Sex: Female
  Weight: 86.26 kg

DRUGS (5)
  1. KLONOPIN [Concomitant]
     Active Substance: CLONAZEPAM
     Indication: ANXIETY
  2. PHENERGAN [Concomitant]
     Active Substance: PROMETHAZINE HYDROCHLORIDE
     Indication: NAUSEA
  3. MARINOL [Suspect]
     Active Substance: DRONABINOL
     Indication: MIGRAINE
     Route: 048
     Dates: start: 2013
  4. VITAMIN D [Concomitant]
     Active Substance: CHOLECALCIFEROL
     Indication: VITAMIN D DECREASED
  5. ADDERALL [Concomitant]
     Active Substance: AMPHETAMINE ASPARTATE\AMPHETAMINE SULFATE\DEXTROAMPHETAMINE SACCHARATE\DEXTROAMPHETAMINE SULFATE
     Indication: PRODUCT USED FOR UNKNOWN INDICATION

REACTIONS (8)
  - Oropharyngeal pain [Recovered/Resolved]
  - Speech disorder [Recovering/Resolving]
  - Rotator cuff syndrome [Recovering/Resolving]
  - Joint dislocation [Recovering/Resolving]
  - Fatigue [Recovering/Resolving]
  - Victim of crime [Recovered/Resolved]
  - Bronchitis [Recovering/Resolving]
  - Off label use [Not Recovered/Not Resolved]

NARRATIVE: CASE EVENT DATE: 201802
